FAERS Safety Report 20255805 (Version 2)
Quarter: 2022Q1

REPORT INFORMATION
  Report Type: Spontaneous
  Country: US (occurrence: US)
  Receive Date: 20211230
  Receipt Date: 20220201
  Transmission Date: 20220423
  Serious: Yes (Other)
  Sender: FDA-Public Use
  Company Number: US-GSKCCFUS-Case-01252956_AE-73344

PATIENT
  Age: 66 Year
  Sex: Female

DRUGS (1)
  1. SOTROVIMAB [Suspect]
     Active Substance: SOTROVIMAB
     Indication: Product used for unknown indication
     Dosage: 500 MG
     Route: 042
     Dates: start: 20211224

REACTIONS (13)
  - Mental impairment [Unknown]
  - Pyrexia [Recovered/Resolved]
  - Chills [Unknown]
  - Bronchospasm [Not Recovered/Not Resolved]
  - Pain [Unknown]
  - Cough [Recovered/Resolved]
  - Headache [Unknown]
  - Arthralgia [Unknown]
  - Blood pressure increased [Unknown]
  - Fatigue [Unknown]
  - Gait disturbance [Unknown]
  - Oxygen saturation decreased [Unknown]
  - Feeling abnormal [Unknown]

NARRATIVE: CASE EVENT DATE: 20211201
